FAERS Safety Report 7583484-X (Version None)
Quarter: 2011Q2

REPORT INFORMATION
  Report Type: 
  Country: None (occurrence: None)
  Receive Date: 20110630
  Receipt Date: 20110615
  Transmission Date: 20111010
  Serious: Yes (Life-Threatening, Hospitalization)
  Sender: FDA-Public Use
  Company Number: FR-ROCHE-761433

PATIENT
  Sex: Male
  Weight: 57 kg

DRUGS (16)
  1. PREDNISONE [Suspect]
     Dosage: FREQUENCY: DAILY
     Route: 048
     Dates: start: 20101201
  2. BACTRIM [Concomitant]
     Dates: start: 20101127
  3. OMIX [Concomitant]
     Dates: start: 20101130
  4. MYCOPHENOLATE MEFETIL [Suspect]
     Dosage: FREQUENCY: DAILY.
     Route: 048
     Dates: start: 20101124
  5. VALACYCLOVIR [Concomitant]
     Dates: start: 20101129
  6. PREVISCAN [Concomitant]
     Dates: start: 20110405
  7. OMEPRAZOLE [Concomitant]
     Dates: start: 20101126
  8. PLAQUENIL [Concomitant]
     Dates: start: 20101217
  9. CALCIPARINE [Concomitant]
     Dosage: TOTAL DAILY DOSE: 0.2 ML X 2/24
  10. LASIX [Concomitant]
     Dates: start: 20110112
  11. FERROUS SULFATE TAB [Concomitant]
     Dates: start: 20101129
  12. AMLODIPINE [Concomitant]
     Dates: start: 20101128
  13. EVEROLIMUS [Suspect]
     Dosage: FREQUENCY: DAILY
     Route: 048
     Dates: start: 20101129
  14. FERROUS SULFATE TAB [Concomitant]
     Dates: start: 20101129
  15. MYCOPHENOLATE MEFETIL [Suspect]
     Dosage: DOSE REDUCED.
     Route: 048
  16. DETENSIEL [Concomitant]
     Dates: start: 20101129

REACTIONS (2)
  - LUNG DISORDER [None]
  - ANGINA UNSTABLE [None]
